FAERS Safety Report 25070676 (Version 5)
Quarter: 2025Q4

REPORT INFORMATION
  Report Type: Spontaneous
  Country: US (occurrence: US)
  Receive Date: 20250312
  Receipt Date: 20251222
  Transmission Date: 20260118
  Serious: No
  Sender: SANOFI AVENTIS
  Company Number: US-SA-2025SA072243

PATIENT
  Age: 89 Year
  Sex: Male

DRUGS (3)
  1. DUPIXENT [Suspect]
     Active Substance: DUPILUMAB
     Indication: Chronic obstructive pulmonary disease
     Dosage: 300 MG, QOW
     Route: 058
     Dates: start: 202411, end: 20250318
  2. DUPIXENT [Suspect]
     Active Substance: DUPILUMAB
     Dosage: 300 MG, QOW
     Route: 058
     Dates: start: 2025
  3. TRELEGY ELLIPTA [Concomitant]
     Active Substance: FLUTICASONE FUROATE\UMECLIDINIUM BROMIDE\VILANTEROL TRIFENATATE

REACTIONS (17)
  - Dry mouth [Not Recovered/Not Resolved]
  - Swollen tongue [Recovering/Resolving]
  - Condition aggravated [Recovering/Resolving]
  - Glossodynia [Unknown]
  - Speech disorder [Unknown]
  - Throat tightness [Recovered/Resolved]
  - Lip swelling [Recovered/Resolved]
  - Respiratory tract infection [Recovered/Resolved]
  - Candida infection [Recovered/Resolved]
  - Vitamin B12 deficiency [Not Recovered/Not Resolved]
  - Folate deficiency [Not Recovered/Not Resolved]
  - Anaemia [Not Recovered/Not Resolved]
  - Heart rate irregular [Not Recovered/Not Resolved]
  - Tongue movement disturbance [Unknown]
  - Abdominal discomfort [Unknown]
  - Condition aggravated [Unknown]
  - Diabetic complication cardiovascular [Not Recovered/Not Resolved]

NARRATIVE: CASE EVENT DATE: 20250101
